FAERS Safety Report 21434712 (Version 1)
Quarter: 2022Q4

REPORT INFORMATION
  Report Type: Spontaneous
  Country: DE (occurrence: DE)
  Receive Date: 20221010
  Receipt Date: 20221010
  Transmission Date: 20230113
  Serious: Yes (Other)
  Sender: FDA-Public Use
  Company Number: None

PATIENT
  Sex: Male
  Weight: 93 kg

DRUGS (3)
  1. OBINUTUZUMAB [Suspect]
     Active Substance: OBINUTUZUMAB
     Indication: Chronic lymphocytic leukaemia
     Dosage: 1000 MG; I.V.?-VORAUSSICHTLICH WIRD BIS 03.10.2022 GENOMMEN
     Route: 042
     Dates: start: 20220808
  2. VENETOCLAX [Suspect]
     Active Substance: VENETOCLAX
     Indication: Chronic lymphocytic leukaemia
     Dosage: 50 MG; P.O.
     Route: 048
     Dates: start: 20220905
  3. ENOXAPARIN SODIUM [Concomitant]
     Active Substance: ENOXAPARIN SODIUM
     Indication: Thrombosis
     Dosage: 80 MG; S.C.?- VORAUSSICHTLICH WIRD  BIS 03.10.2022 GENOMMEN
     Route: 058
     Dates: start: 20220822

REACTIONS (1)
  - Alopecia areata [Not Recovered/Not Resolved]
